FAERS Safety Report 23232187 (Version 1)
Quarter: 2023Q4

REPORT INFORMATION
  Report Type: Spontaneous
  Country: US (occurrence: US)
  Receive Date: 20231127
  Receipt Date: 20231127
  Transmission Date: 20240109
  Serious: Yes (Other)
  Sender: FDA-Public Use
  Company Number: US-Fresenius Medical Care Renal Therapies Group-FMC-2311-001266

PATIENT
  Age: 73 Year
  Sex: Male
  Weight: 88 kg

DRUGS (1)
  1. DELFLEX [Suspect]
     Active Substance: CALCIUM CHLORIDE\DEXTROSE\MAGNESIUM CHLORIDE\SODIUM CHLORIDE\SODIUM LACTATE
     Dosage: TOTAL VOLUME 7000MLS, DWELL 1:38HRS, FILL VOLUME 1400MLS, 5 FILLS.
     Route: 033

REACTIONS (1)
  - Peritonitis bacterial [Recovered/Resolved]
